FAERS Safety Report 24165290 (Version 1)
Quarter: 2024Q3

REPORT INFORMATION
  Report Type: Report from Study
  Country: DE (occurrence: DE)
  Receive Date: 20240802
  Receipt Date: 20240802
  Transmission Date: 20241016
  Serious: Yes (Hospitalization, Other)
  Sender: BAXTER
  Company Number: DE-BAXTER-2024BAX022193

PATIENT

DRUGS (13)
  1. CYCLOPHOSPHAMIDE [Suspect]
     Active Substance: CYCLOPHOSPHAMIDE
     Indication: Hodgkin^s disease
     Dosage: 2440 MILLIGRAM/SQ. METER, AS PART OF BRECADD REGIMEN, (CYCLE 2, LAST DOSE PRIOR TO ONSET OF THE EVEN
     Route: 065
     Dates: start: 20200526
  2. DOXORUBICIN [Suspect]
     Active Substance: DOXORUBICIN
     Indication: Hodgkin^s disease
     Dosage: 78 MG/M2, AS PART OF BRECADD REGIMEN, (CYCLE 2, LAST DOSE PRIOR TO ONSET OF THE EVENT)
     Route: 065
     Dates: start: 20200526
  3. BRENTUXIMAB VEDOTIN [Suspect]
     Active Substance: BRENTUXIMAB VEDOTIN
     Indication: Hodgkin^s disease
     Dosage: 148 (UNIT AND FREQUENCY NOT REPORTED), AS PART OF BRECADD REGIMEN, (CYCLE 2, LAST DOSE PRIOR TO ONSE
     Route: 065
     Dates: start: 20200525
  4. PANTOZOL [Suspect]
     Active Substance: PANTOPRAZOLE SODIUM
     Dosage: 40 MG, LAST DOSE
     Route: 065
     Dates: start: 20200424, end: 20200619
  5. ETOPOSIDE [Suspect]
     Active Substance: ETOPOSIDE
     Indication: Hodgkin^s disease
     Dosage: 293 MILLIGRAM/SQ. METER, AS PART OF BRECADD REGIMEN
     Route: 065
     Dates: start: 20200526
  6. ETOPOSIDE [Suspect]
     Active Substance: ETOPOSIDE
     Dosage: (CYCLE 2), LAST DOSE PRIOR TO ONSET OF EVENT
     Route: 065
     Dates: start: 20200528
  7. DACARBAZINE [Suspect]
     Active Substance: DACARBAZINE
     Indication: Hodgkin^s disease
     Dosage: 488 MG/M2, AS PART OF BRECADD REGIMEN
     Route: 065
     Dates: start: 20200527
  8. DACARBAZINE [Suspect]
     Active Substance: DACARBAZINE
     Dosage: CYCLE 2, LAST DOSE, PRIOR TO ONSET OF EVENT
     Route: 065
     Dates: start: 20200528
  9. DEXAMETHASONE [Suspect]
     Active Substance: DEXAMETHASONE
     Indication: Hodgkin^s disease
     Dosage: 160 (UNIT NOT REPORTED), AS PART OF BRECADD REGIMEN
     Route: 065
     Dates: start: 20200526
  10. DEXAMETHASONE [Suspect]
     Active Substance: DEXAMETHASONE
     Dosage: UNK, CYCLE 2, LAST DOSE PRIOR TO THE ONSET OF THE EVENT
     Route: 065
     Dates: start: 20200529
  11. Ciprobay [Concomitant]
     Dosage: UNK
     Route: 065
     Dates: start: 20200507
  12. SULFAMETHOXAZOLE\TRIMETHOPRIM [Concomitant]
     Active Substance: SULFAMETHOXAZOLE\TRIMETHOPRIM
     Dosage: UNK
     Route: 065
     Dates: start: 20200429
  13. VALSARTAN [Concomitant]
     Active Substance: VALSARTAN
     Dosage: UNK
     Route: 065
     Dates: start: 20200424

REACTIONS (2)
  - Syncope [Recovered/Resolved]
  - Abdominal pain [Recovered/Resolved]

NARRATIVE: CASE EVENT DATE: 20200602
